FAERS Safety Report 5194767-5 (Version None)
Quarter: 2006Q4

REPORT INFORMATION
  Report Type: 
  Country: None (occurrence: None)
  Receive Date: 20061229
  Receipt Date: 20060502
  Transmission Date: 20070319
  Serious: Yes (Hospitalization)
  Sender: FDA-Public Use
  Company Number: US-ELI_LILLY_AND_COMPANY-US200608005278

PATIENT
  Age: 58 Year
  Sex: Female
  Weight: 68.934 kg

DRUGS (4)
  1. ZYPREXA [Suspect]
     Indication: DEPRESSION
     Dosage: 5 MG, UNK
     Dates: start: 20010101, end: 20030101
  2. BUPROPION HCL [Concomitant]
     Dates: start: 20010101, end: 20030101
  3. METOPROLOL SUCCINATE [Concomitant]
     Dates: start: 19960101
  4. PROPRANOLOL [Concomitant]
     Dates: start: 19960101

REACTIONS (4)
  - CARDIAC OPERATION [None]
  - CHEST PAIN [None]
  - DIABETES MELLITUS [None]
  - METABOLIC DISORDER [None]
